FAERS Safety Report 18758030 (Version 1)
Quarter: 2021Q1

REPORT INFORMATION
  Report Type: Spontaneous
  Country: FR (occurrence: FR)
  Receive Date: 20210119
  Receipt Date: 20210119
  Transmission Date: 20210419
  Serious: Yes (Death, Life-Threatening)
  Sender: FDA-Public Use
  Company Number: FR-TEVA-2018-FR-911889

PATIENT
  Age: 23 Year
  Sex: Female
  Weight: 53 kg

DRUGS (12)
  1. ROVALCYTE [Suspect]
     Active Substance: VALGANCICLOVIR HYDROCHLORIDE
     Indication: CYTOMEGALOVIRUS INFECTION
     Dosage: 900 MILLIGRAM DAILY;
     Route: 048
     Dates: start: 20171224, end: 20180104
  2. CHOLURSO [Concomitant]
     Active Substance: URSODIOL
     Route: 065
  3. FUNGIZONE [Concomitant]
     Active Substance: AMPHOTERICIN B
     Route: 065
  4. INEXIUM [Concomitant]
     Active Substance: ESOMEPRAZOLE
     Route: 065
  5. PIVALONE [Concomitant]
     Route: 065
  6. ZARZIO [Concomitant]
     Active Substance: FILGRASTIM
     Route: 065
  7. ZITHROMAX [Concomitant]
     Active Substance: AZITHROMYCIN DIHYDRATE
     Route: 065
  8. CREON [Concomitant]
     Active Substance: PANCRELIPASE AMYLASE\PANCRELIPASE LIPASE\PANCRELIPASE PROTEASE
     Route: 065
  9. SOLUPRED [Concomitant]
     Route: 065
  10. METHOTREXATE. [Suspect]
     Active Substance: METHOTREXATE
     Route: 037
     Dates: start: 20171223
  11. ADOPORT [Concomitant]
     Active Substance: TACROLIMUS
     Route: 065
  12. AMLOR [Concomitant]
     Active Substance: AMLODIPINE BESYLATE
     Route: 065

REACTIONS (1)
  - Pancytopenia [Fatal]

NARRATIVE: CASE EVENT DATE: 20171227
